FAERS Safety Report 12922864 (Version 1)
Quarter: 2016Q4

REPORT INFORMATION
  Report Type: Spontaneous
  Country: RU (occurrence: RU)
  Receive Date: 20161109
  Receipt Date: 20161109
  Transmission Date: 20170207
  Serious: Yes (Death)
  Sender: FDA-Public Use
  Company Number: RU-ASTRAZENECA-2016SF15915

PATIENT
  Age: 60 Year
  Sex: Female
  Weight: 130 kg

DRUGS (8)
  1. CARDIASK [Concomitant]
     Active Substance: ASPIRIN
     Indication: ACUTE CORONARY SYNDROME
     Dosage: 100.0MG UNKNOWN
     Route: 048
  2. CORDARONE [Concomitant]
     Active Substance: AMIODARONE HYDROCHLORIDE
     Indication: ACUTE CORONARY SYNDROME
     Dosage: 20.0MG UNKNOWN
     Route: 048
     Dates: start: 20160918
  3. OMEZ [Concomitant]
     Active Substance: OMEPRAZOLE
     Indication: ACUTE CORONARY SYNDROME
     Dosage: 20.0MG UNKNOWN
     Route: 048
  4. BRILINTA [Suspect]
     Active Substance: TICAGRELOR
     Indication: ACUTE CORONARY SYNDROME
     Route: 048
     Dates: start: 20160918, end: 20160918
  5. VEROSPIRON [Concomitant]
     Active Substance: SPIRONOLACTONE
     Indication: ACUTE CORONARY SYNDROME
     Dosage: 25.0MG UNKNOWN
     Route: 048
     Dates: start: 20160918
  6. CLEXANE [Concomitant]
     Active Substance: ENOXAPARIN SODIUM
     Indication: ACUTE CORONARY SYNDROME
     Dosage: 0.8MG UNKNOWN
     Route: 058
     Dates: start: 20160918
  7. ATORVASTATIN [Concomitant]
     Active Substance: ATORVASTATIN
     Indication: ACUTE CORONARY SYNDROME
     Dosage: 80.0MG UNKNOWN
     Route: 048
     Dates: start: 20160918
  8. ACTRAPID [Concomitant]
     Active Substance: INSULIN HUMAN
     Indication: ACUTE CORONARY SYNDROME
     Route: 058

REACTIONS (1)
  - Cardiogenic shock [Fatal]

NARRATIVE: CASE EVENT DATE: 20160918
